FAERS Safety Report 6080778-4 (Version None)
Quarter: 2009Q1

REPORT INFORMATION
  Report Type: 
  Country: None (occurrence: None)
  Receive Date: 20090217
  Receipt Date: 20090205
  Transmission Date: 20090719
  Serious: Yes (Life-Threatening, Hospitalization)
  Sender: FDA-Public Use
  Company Number: LI-ELI_LILLY_AND_COMPANY-LI200901002281

PATIENT
  Age: 49 Year
  Sex: Female
  Weight: 59 kg

DRUGS (1)
  1. CYMBALTA [Suspect]
     Dosage: 1 D/F, ONCE
     Route: 065
     Dates: start: 20081202, end: 20081202

REACTIONS (1)
  - CEREBRAL VENOUS THROMBOSIS [None]
